FAERS Safety Report 22287541 (Version 1)
Quarter: 2023Q2

REPORT INFORMATION
  Report Type: Report from Study
  Country: CA (occurrence: None)
  Receive Date: 20230505
  Receipt Date: 20230505
  Transmission Date: 20230722
  Serious: Yes (Other)
  Sender: FDA-Public Use
  Company Number: CA-PFIZER INC-202101234956

PATIENT
  Age: 62 Year
  Sex: Female

DRUGS (10)
  1. METHOTREXATE [Suspect]
     Active Substance: METHOTREXATE
     Indication: Product used for unknown indication
     Route: 048
  2. METHOTREXATE [Suspect]
     Active Substance: METHOTREXATE
     Route: 048
  3. ERELZI [Suspect]
     Active Substance: ETANERCEPT-SZZS
     Indication: Rheumatoid arthritis
     Route: 058
  4. METHOTREXATE [Suspect]
     Active Substance: METHOTREXATE
     Indication: Product used for unknown indication
     Route: 048
  5. HYDROXYCHLOROQUINE [Concomitant]
     Active Substance: HYDROXYCHLOROQUINE
     Route: 048
  6. SYNTHROID [Concomitant]
     Active Substance: LEVOTHYROXINE SODIUM
     Route: 048
  7. VENTOLIN [Concomitant]
     Active Substance: ALBUTEROL SULFATE
     Route: 055
  8. VENTOLIN [Concomitant]
     Active Substance: ALBUTEROL SULFATE
     Route: 065
  9. RITUXIMAB [Suspect]
     Active Substance: RITUXIMAB
  10. TEMOZOLOMIDE [Suspect]
     Active Substance: TEMOZOLOMIDE

REACTIONS (11)
  - Drug ineffective [Unknown]
  - C-reactive protein increased [Unknown]
  - Red blood cell sedimentation rate increased [Unknown]
  - Pain [Unknown]
  - Arthralgia [Unknown]
  - Bronchitis [Unknown]
  - Fatigue [Unknown]
  - Gait disturbance [Unknown]
  - Osteomyelitis [Unknown]
  - Pain in extremity [Unknown]
  - Peripheral swelling [Unknown]
